FAERS Safety Report 18048700 (Version 1)
Quarter: 2020Q3

REPORT INFORMATION
  Report Type: Spontaneous
  Country: HK (occurrence: HK)
  Receive Date: 20200721
  Receipt Date: 20200721
  Transmission Date: 20201103
  Serious: Yes (Other)
  Sender: FDA-Public Use
  Company Number: HK-ROCHE-2643537

PATIENT

DRUGS (1)
  1. ENTRECTINIB [Suspect]
     Active Substance: ENTRECTINIB
     Indication: ANAPLASTIC LYMPHOMA KINASE GENE AND NUCLEOPHOSMIN GENE FUSION OVEREXPRESSION
     Route: 065

REACTIONS (2)
  - Creatinine renal clearance decreased [Unknown]
  - Blood pressure increased [Unknown]
